FAERS Safety Report 23342906 (Version 2)
Quarter: 2024Q1

REPORT INFORMATION
  Report Type: Report from Study
  Country: NL (occurrence: NL)
  Receive Date: 20231227
  Receipt Date: 20240219
  Transmission Date: 20240410
  Serious: Yes (Other)
  Sender: FDA-Public Use
  Company Number: NL-TEVA-VS-3136535

PATIENT
  Sex: Male

DRUGS (2)
  1. TEMOZOLOMIDE [Suspect]
     Active Substance: TEMOZOLOMIDE
     Indication: Carcinoid tumour
     Route: 065
  2. CAPECITABINE [Concomitant]
     Active Substance: CAPECITABINE
     Indication: Carcinoid tumour
     Route: 065

REACTIONS (2)
  - Drug resistance [Unknown]
  - Hypermutation [Unknown]
